FAERS Safety Report 5464934-1 (Version None)
Quarter: 2007Q3

REPORT INFORMATION
  Report Type: 
  Country: None (occurrence: None)
  Receive Date: 20070921
  Receipt Date: 20070911
  Transmission Date: 20080115
  Serious: Yes (Other)
  Sender: FDA-Public Use
  Company Number: FR-PFIZER INC-2007076882

PATIENT
  Sex: Female

DRUGS (3)
  1. LYRICA [Suspect]
     Dates: start: 20060908, end: 20061215
  2. OXYCONTIN [Concomitant]
  3. OXYNORM [Concomitant]

REACTIONS (9)
  - ARTHRALGIA [None]
  - CLONUS [None]
  - COORDINATION ABNORMAL [None]
  - FEELING DRUNK [None]
  - FLATULENCE [None]
  - HALLUCINATION [None]
  - MUSCLE SPASMS [None]
  - TREMOR [None]
  - WEIGHT INCREASED [None]
